FAERS Safety Report 8098947-0 (Version None)
Quarter: 2012Q1

REPORT INFORMATION
  Report Type: 
  Country: None (occurrence: None)
  Receive Date: 20120129
  Receipt Date: 20111003
  Transmission Date: 20120608
  Serious: No
  Sender: FDA-Public Use
  Company Number: US-ABBOTT-11P-163-0860769-00

PATIENT
  Age: 68 Year
  Sex: Female

DRUGS (7)
  1. GABAPENTIN [Concomitant]
     Indication: PAIN
  2. MELOXCAM [Concomitant]
     Indication: INFLAMMATION
  3. AMLODIPINE [Concomitant]
     Indication: BLOOD PRESSURE INCREASED
     Dosage: 5-160 MG DAILY
  4. HUMIRA [Suspect]
     Indication: RHEUMATOID ARTHRITIS
     Dates: start: 20110816
  5. ACETAMINOPHEN [Concomitant]
     Indication: PAIN
     Dosage: TOGETHER WITH TRMADOL
  6. TRAMADOL HCL [Concomitant]
     Indication: PAIN
     Dosage: TOGETHER WITH TYLENOL
  7. LIPITOR [Concomitant]
     Indication: BLOOD CHOLESTEROL INCREASED

REACTIONS (1)
  - BACK PAIN [None]
